FAERS Safety Report 5229176-3 (Version None)
Quarter: 2007Q1

REPORT INFORMATION
  Report Type: 
  Country: None (occurrence: None)
  Receive Date: 20061201
  Receipt Date: 20060925
  Transmission Date: 20070707
  Serious: No
  Sender: FDA-Public Use
  Company Number: US200609006438

PATIENT
  Age: 59 Year
  Sex: Female

DRUGS (10)
  1. CYMBALTA [Suspect]
     Indication: DEPRESSION
     Dosage: SEE IMAGE
     Dates: start: 20060918, end: 20060920
  2. CYMBALTA [Suspect]
     Indication: DEPRESSION
     Dosage: SEE IMAGE
     Dates: start: 20060921
  3. XANAX /USA/(ALPRAZOLAM) [Concomitant]
  4. ATIVAN [Concomitant]
  5. AMBIEN [Concomitant]
  6. ZYPREXA [Concomitant]
  7. PROVIGIL [Concomitant]
  8. FOSAMAX /ITA/(ALENDRONATE SODIUM) [Concomitant]
  9. PERPHENAZINE [Concomitant]
  10. CELEXA [Concomitant]

REACTIONS (8)
  - ASTHENIA [None]
  - DECREASED APPETITE [None]
  - DRUG INEFFECTIVE [None]
  - DRY MOUTH [None]
  - FEELING ABNORMAL [None]
  - INSOMNIA [None]
  - MALAISE [None]
  - MEMORY IMPAIRMENT [None]
